FAERS Safety Report 5639100-7 (Version None)
Quarter: 2008Q1

REPORT INFORMATION
  Report Type: 
  Country: None (occurrence: None)
  Receive Date: 20080226
  Receipt Date: 20080214
  Transmission Date: 20080703
  Serious: Yes (Hospitalization)
  Sender: FDA-Public Use
  Company Number: PHBS2008ES02444

PATIENT
  Age: 42 Year
  Sex: Male

DRUGS (4)
  1. CYCLOSPORINE [Suspect]
     Indication: STEM CELL TRANSPLANT
     Route: 065
  2. METHOTREXATE [Concomitant]
     Indication: STEM CELL TRANSPLANT
     Dosage: DAYS 1, 3, 6 AND 11
  3. BUSULFAN [Concomitant]
     Indication: STEM CELL TRANSPLANT
     Dosage: 4 MG/KG/DAY
     Route: 048
  4. CYCLOPHOSPHAMIDE [Concomitant]
     Indication: STEM CELL TRANSPLANT
     Dosage: 60 MG/KG/DAY

REACTIONS (16)
  - ABDOMINAL PAIN [None]
  - ABDOMINAL PAIN UPPER [None]
  - ACUTE GRAFT VERSUS HOST DISEASE IN INTESTINE [None]
  - CHRONIC GRAFT VERSUS HOST DISEASE [None]
  - CYTOMEGALOVIRUS ANTIGEN POSITIVE [None]
  - DIARRHOEA [None]
  - GASTRODUODENITIS [None]
  - HEPATIC ENZYME INCREASED [None]
  - ILEAL STENOSIS [None]
  - ILEECTOMY [None]
  - INTESTINAL MUCOSAL HYPERTROPHY [None]
  - INTESTINAL OBSTRUCTION [None]
  - TUBERCULIN TEST POSITIVE [None]
  - TUBERCULOSIS TEST POSITIVE [None]
  - VENOOCCLUSIVE DISEASE [None]
  - WEIGHT DECREASED [None]
